FAERS Safety Report 5483232-3 (Version None)
Quarter: 2007Q4

REPORT INFORMATION
  Report Type: 
  Country: None (occurrence: None)
  Receive Date: 20071009
  Receipt Date: 20070921
  Transmission Date: 20080405
  Serious: Yes (Life-Threatening, Hospitalization, Other)
  Sender: FDA-Public Use
  Company Number: 2007001621

PATIENT
  Age: 53 Year
  Sex: Male

DRUGS (9)
  1. TARCEVA [Suspect]
     Indication: NON-SMALL CELL LUNG CANCER
     Dosage: 150 MG (QD), ORAL
     Route: 048
     Dates: start: 20070821, end: 20070821
  2. METOPROLOL TARTRATE [Concomitant]
  3. RAMIPRIL COMP [Concomitant]
  4. HYDROCHLOROTHIAZIDE [Concomitant]
  5. ESOMEPRAZOLE (ESOMEPRAZOLE) [Concomitant]
  6. ACETYLCYSTEINE [Concomitant]
  7. DEXAMETHASONE TAB [Concomitant]
  8. PROMETHAZINE HCL [Concomitant]
  9. PARACODINE (DIHYDROCODEINE BITARTRATE) [Concomitant]

REACTIONS (23)
  - BLOOD CREATININE DECREASED [None]
  - BLOOD GLUCOSE INCREASED [None]
  - BLOOD LACTATE DEHYDROGENASE INCREASED [None]
  - BLOOD URIC ACID INCREASED [None]
  - BRONCHIAL NEOPLASM [None]
  - BRONCHOSTENOSIS [None]
  - C-REACTIVE PROTEIN INCREASED [None]
  - CEREBRAL INFARCTION [None]
  - CEREBRAL ISCHAEMIA [None]
  - GASTRITIS HAEMORRHAGIC [None]
  - HAEMATOCRIT DECREASED [None]
  - HAEMOGLOBIN DECREASED [None]
  - HAEMOPTYSIS [None]
  - LYMPHANGIOSIS CARCINOMATOSA [None]
  - METASTASES TO CENTRAL NERVOUS SYSTEM [None]
  - NEOPLASM PROGRESSION [None]
  - NERVOUS SYSTEM DISORDER [None]
  - PLEURAL EFFUSION [None]
  - PULMONARY HAEMORRHAGE [None]
  - RED BLOOD CELL COUNT DECREASED [None]
  - TACHYCARDIA [None]
  - VERTIGO [None]
  - VISUAL ACUITY REDUCED [None]
